FAERS Safety Report 13069948 (Version 1)
Quarter: 2016Q4

REPORT INFORMATION
  Report Type: Spontaneous
  Country: GB (occurrence: GB)
  Receive Date: 20161228
  Receipt Date: 20161228
  Transmission Date: 20170207
  Serious: Yes (Life-Threatening, Hospitalization, Disabling, Other)
  Sender: FDA-Public Use
  Company Number: GB-TEVA-724322ACC

PATIENT
  Age: 19 Year
  Sex: Female
  Weight: 70 kg

DRUGS (6)
  1. VENLAFAXINE [Suspect]
     Active Substance: VENLAFAXINE HYDROCHLORIDE
     Indication: AFFECTIVE DISORDER
     Dosage: 225 MILLIGRAM DAILY;
     Route: 048
  2. VENLAFAXINE [Suspect]
     Active Substance: VENLAFAXINE HYDROCHLORIDE
     Indication: INTENTIONAL OVERDOSE
     Route: 048
     Dates: start: 20161206
  3. IBUPROFEN. [Concomitant]
     Active Substance: IBUPROFEN
  4. COCODAMOL [Concomitant]
     Active Substance: ACETAMINOPHEN\CODEINE PHOSPHATE
  5. FLUOXETINE [Concomitant]
     Active Substance: FLUOXETINE HYDROCHLORIDE
  6. OLANZAPINE. [Concomitant]
     Active Substance: OLANZAPINE

REACTIONS (9)
  - Intentional overdose [Recovering/Resolving]
  - Ventricular fibrillation [Recovering/Resolving]
  - Cardiac arrest [Recovering/Resolving]
  - Pyrexia [Recovering/Resolving]
  - Acute kidney injury [Recovering/Resolving]
  - Tachycardia [Recovering/Resolving]
  - Coma scale abnormal [Recovering/Resolving]
  - Generalised tonic-clonic seizure [Recovered/Resolved]
  - Electrocardiogram QT prolonged [Recovering/Resolving]

NARRATIVE: CASE EVENT DATE: 20161206
